FAERS Safety Report 17493165 (Version 2)
Quarter: 2020Q1

REPORT INFORMATION
  Report Type: Spontaneous
  Country: US (occurrence: US)
  Receive Date: 20200303
  Receipt Date: 20200312
  Transmission Date: 20200409
  Serious: No
  Sender: FDA-Public Use
  Company Number: US-009507513-2002USA010453

PATIENT
  Age: 36 Year
  Sex: Female
  Weight: 107.03 kg

DRUGS (1)
  1. NEXPLANON [Suspect]
     Active Substance: ETONOGESTREL
     Dosage: 1 ROD SUBDERMALLY EVERY 3 YEARS; LEFT ARM
     Route: 059
     Dates: start: 20200225

REACTIONS (7)
  - Device difficult to use [Unknown]
  - Device deployment issue [Unknown]
  - Product quality issue [Unknown]
  - Wrong technique in product usage process [Unknown]
  - No adverse event [Unknown]
  - Complication associated with device [Unknown]
  - Device expulsion [Unknown]

NARRATIVE: CASE EVENT DATE: 2020
